FAERS Safety Report 8782885 (Version 1)
Quarter: 2012Q4

REPORT INFORMATION
  Report Type: 
  Country: US (occurrence: US)
  Receive Date: 20120913
  Receipt Date: 20120913
  Transmission Date: 20130627
  Serious: No
  Sender: FDA-Public Use
  Company Number: US-ASTRAZENECA-2012SE69736

PATIENT
  Age: 48 Year
  Sex: Female

DRUGS (1)
  1. CRESTOR [Suspect]
     Route: 048

REACTIONS (5)
  - Multiple allergies [Unknown]
  - Asthma [Unknown]
  - Sinus disorder [Unknown]
  - Oropharyngeal pain [Unknown]
  - Blood cholesterol increased [Unknown]
